FAERS Safety Report 10336029 (Version 2)
Quarter: 2014Q3

REPORT INFORMATION
  Report Type: Spontaneous
  Country: US (occurrence: US)
  Receive Date: 20140723
  Receipt Date: 20140723
  Transmission Date: 20150326
  Serious: No
  Sender: FDA-Public Use
  Company Number: US-BRISTOL-MYERS SQUIBB COMPANY-19517549

PATIENT
  Age: 37 Year
  Sex: Female

DRUGS (11)
  1. SERTRALINE [Interacting]
     Active Substance: SERTRALINE HYDROCHLORIDE
     Indication: DEPRESSION
  2. BUDESONIDE. [Concomitant]
     Active Substance: BUDESONIDE
     Indication: NASAL INFLAMMATION
     Dosage: BUDESONIDE NASAL SPRAY
     Route: 045
  3. ANTIBIOTIC [Concomitant]
     Active Substance: UNSPECIFIED INGREDIENT
     Indication: NASAL INFLAMMATION
     Dosage: ANTIBIOTIC NASAL SPRAY
     Route: 045
  4. MULTIVITAMINS + FOLATE [Concomitant]
  5. FAMOTIDINE. [Concomitant]
     Active Substance: FAMOTIDINE
     Indication: PROPHYLAXIS
  6. COUMADIN [Suspect]
     Active Substance: WARFARIN SODIUM
     Indication: THROMBOSIS
     Dosage: INCREASED TO 10MG OD THEN TO 15MG OD
     Route: 048
     Dates: start: 20130712
  7. PREDNISONE. [Interacting]
     Active Substance: PREDNISONE
     Indication: CONGENITAL SYPHILITIC OSTEOCHONDRITIS
  8. ENOXAPARIN [Concomitant]
     Active Substance: ENOXAPARIN
     Indication: ANTICOAGULANT THERAPY
     Route: 058
     Dates: start: 20130712
  9. AMLODIPINE [Concomitant]
     Active Substance: AMLODIPINE BESYLATE
     Indication: HYPERTENSION
  10. IVIG [Concomitant]
     Active Substance: HUMAN IMMUNOGLOBULIN G
     Indication: CONGENITAL SYPHILITIC OSTEOCHONDRITIS
  11. AZATHIOPRINE. [Interacting]
     Active Substance: AZATHIOPRINE
     Indication: CONGENITAL SYPHILITIC OSTEOCHONDRITIS

REACTIONS (1)
  - Drug interaction [Unknown]
